FAERS Safety Report 18559352 (Version 1)
Quarter: 2020Q4

REPORT INFORMATION
  Report Type: Spontaneous
  Country: US (occurrence: US)
  Receive Date: 20201128
  Receipt Date: 20201128
  Transmission Date: 20210114
  Serious: No
  Sender: FDA-Public Use
  Company Number: None

PATIENT
  Age: 30 Year
  Sex: Male
  Weight: 128.7 kg

DRUGS (13)
  1. ZOLPIDEM TART ER 12.5 MG NDC: 68180-0780-01 [Suspect]
     Active Substance: ZOLPIDEM TARTRATE
     Indication: INSOMNIA
     Dosage: ?          QUANTITY:30 TABLET(S);?
     Route: 048
     Dates: start: 20201113, end: 20201127
  2. FINASTERIDE. [Concomitant]
     Active Substance: FINASTERIDE
  3. KERATIN [Concomitant]
     Active Substance: KERATIN
  4. FISH OIL [Concomitant]
     Active Substance: FISH OIL
  5. ZOLPIDEM [Concomitant]
     Active Substance: ZOLPIDEM TARTRATE
  6. LISINOPRIL. [Concomitant]
     Active Substance: LISINOPRIL
  7. VITAMIN C [Concomitant]
     Active Substance: ASCORBIC ACID
  8. VITAMIN E [Concomitant]
     Active Substance: .ALPHA.-TOCOPHEROL
  9. MENS MULTIVITAMIN [Concomitant]
  10. COPPER [Concomitant]
     Active Substance: COPPER
  11. MELATONIN [Concomitant]
     Active Substance: MELATONIN
  12. LATUDA [Concomitant]
     Active Substance: LURASIDONE HYDROCHLORIDE
  13. VITAMIN B COMPLEX [Concomitant]
     Active Substance: CYANOCOBALAMIN\DEXPANTHENOL\NIACINAMIDE\PYRIDOXINE HYDROCHLORIDE\RIBOFLAVIN 5^-PHOSPHATE SODIUM\THIAMINE HYDROCHLORIDE\VITAMIN B COMPLEX

REACTIONS (2)
  - Product substitution [None]
  - Drug ineffective [None]

NARRATIVE: CASE EVENT DATE: 20201113
